FAERS Safety Report 19436722 (Version 1)
Quarter: 2021Q2

REPORT INFORMATION
  Report Type: Spontaneous
  Country: US (occurrence: US)
  Receive Date: 20210618
  Receipt Date: 20210618
  Transmission Date: 20210717
  Serious: No
  Sender: FDA-Public Use
  Company Number: US-SA-2021SA198547

PATIENT
  Age: 24 Year
  Sex: Male

DRUGS (11)
  1. CLONIDINE. [Concomitant]
     Active Substance: CLONIDINE
  2. TRIAMCINOLONE ACETONIDE. [Concomitant]
     Active Substance: TRIAMCINOLONE ACETONIDE
  3. ESCITALOPRAM [Concomitant]
     Active Substance: ESCITALOPRAM OXALATE
  4. QUETIAPINE. [Concomitant]
     Active Substance: QUETIAPINE
  5. DUPIXENT [Suspect]
     Active Substance: DUPILUMAB
     Indication: DERMATITIS ATOPIC
     Dosage: 600MG, 1X
     Route: 058
     Dates: start: 20210204, end: 20210204
  6. DULOXETINE. [Concomitant]
     Active Substance: DULOXETINE
  7. CLOBETASOL [Concomitant]
     Active Substance: CLOBETASOL
  8. CLONAZEPAM. [Concomitant]
     Active Substance: CLONAZEPAM
  9. DUPIXENT [Suspect]
     Active Substance: DUPILUMAB
     Indication: ASTHMA
     Dosage: 300 MG, QM
     Route: 058
     Dates: start: 2021
  10. ALBUTEROL SULFATE HFA [Concomitant]
     Active Substance: ALBUTEROL SULFATE
  11. LAMOTRIGINE. [Concomitant]
     Active Substance: LAMOTRIGINE

REACTIONS (5)
  - Skin fissures [Unknown]
  - Dry skin [Unknown]
  - Product use issue [Unknown]
  - Pruritus [Unknown]
  - Skin exfoliation [Unknown]

NARRATIVE: CASE EVENT DATE: 202106
